FAERS Safety Report 7068221-X (Version None)
Quarter: 2010Q4

REPORT INFORMATION
  Report Type: 
  Country: None (occurrence: None)
  Receive Date: 20101027
  Receipt Date: 20101027
  Transmission Date: 20110411
  Serious: Yes (Disabling)
  Sender: FDA-Public Use
  Company Number: None

PATIENT
  Sex: Female
  Weight: 68.0396 kg

DRUGS (2)
  1. FOSAMAX [Suspect]
     Indication: OSTEOPENIA
     Dosage: 1 TABLET WEEKLY PO
     Route: 048
     Dates: start: 20020410, end: 20050101
  2. ALENDRONATE SODIUM [Suspect]
     Indication: OSTEOPENIA
     Dosage: 1 TABLET WEEKLY PO
     Route: 048
     Dates: start: 20050102, end: 20100404

REACTIONS (2)
  - MUSCLE RUPTURE [None]
  - PATELLA FRACTURE [None]
